FAERS Safety Report 5888812-9 (Version None)
Quarter: 2008Q3

REPORT INFORMATION
  Report Type: 
  Country: None (occurrence: None)
  Receive Date: 20080917
  Receipt Date: 20080917
  Transmission Date: 20090109
  Serious: No
  Sender: FDA-Public Use
  Company Number: None

PATIENT
  Age: 54 Year
  Sex: Female
  Weight: 102.5129 kg

DRUGS (1)
  1. TRAVATAN [Suspect]
     Indication: GLAUCOMA
     Dosage: 1 DROP ONCE AT BEDTIME OPHTHALMIC, 1 MONTH 15 DAYS
     Route: 047

REACTIONS (5)
  - ASTHMA [None]
  - DEPRESSION [None]
  - HEADACHE [None]
  - PALPITATIONS [None]
  - VISION BLURRED [None]
